FAERS Safety Report 9134860 (Version 1)
Quarter: 2013Q1

REPORT INFORMATION
  Report Type: Spontaneous
  Country: US (occurrence: US)
  Receive Date: 20130304
  Receipt Date: 20130304
  Transmission Date: 20140127
  Serious: No
  Sender: FDA-Public Use
  Company Number: US-ENDO PHARMACEUTICALS INC.-ENDC20120055

PATIENT
  Sex: Male
  Weight: 81.72 kg

DRUGS (2)
  1. ENDOCET [Suspect]
     Indication: PAIN
     Dosage: 40/2600 MG
     Route: 048
  2. FENTANYL [Concomitant]
     Indication: PAIN
     Dosage: UNKNOWN
     Route: 062

REACTIONS (3)
  - Drug screen negative [Not Recovered/Not Resolved]
  - False negative investigation result [Not Recovered/Not Resolved]
  - Drug effect decreased [Not Recovered/Not Resolved]
